FAERS Safety Report 25949440 (Version 1)
Quarter: 2025Q4

REPORT INFORMATION
  Report Type: Spontaneous
  Country: US (occurrence: US)
  Receive Date: 20251022
  Receipt Date: 20251022
  Transmission Date: 20260118
  Serious: Yes (Hospitalization)
  Sender: EISAI
  Company Number: US-Eisai-EC-2025-198367

PATIENT
  Age: 66 Year
  Sex: Female

DRUGS (2)
  1. LECANEMAB [Suspect]
     Active Substance: LECANEMAB
     Indication: Dementia Alzheimer^s type
     Dosage: DOSE UNKNOWN
     Route: 042
  2. LECANEMAB [Suspect]
     Active Substance: LECANEMAB
     Dosage: DOSE UNKNOWN
     Route: 042

REACTIONS (2)
  - Amyloid related imaging abnormality-oedema/effusion [Unknown]
  - Seizure [Unknown]
